FAERS Safety Report 4618097-2 (Version None)
Quarter: 2005Q1

REPORT INFORMATION
  Report Type: 
  Country: None (occurrence: None)
  Receive Date: 20050324
  Receipt Date: 20050208
  Transmission Date: 20050727
  Serious: Yes (Hospitalization)
  Sender: FDA-Public Use
  Company Number: CA-SANOFI-SYNTHELABO-F01200500222

PATIENT
  Sex: Female

DRUGS (9)
  1. OXALIPLATIN [Suspect]
     Indication: COLORECTAL CANCER METASTATIC
     Route: 042
     Dates: start: 20050118, end: 20050118
  2. CAPECITABINE [Suspect]
     Dosage: 1300 MG TWICE A DAY FOR 2 WEEKS, Q3W
     Route: 048
     Dates: start: 20050118, end: 20050126
  3. BEVACIZUMAB OR PLACEBO [Suspect]
     Route: 042
     Dates: start: 20050118, end: 20050118
  4. LOSEC [Concomitant]
  5. PROCHLORPERAZINE [Concomitant]
  6. XANAX [Concomitant]
  7. PREMARIN [Concomitant]
     Dosage: UNK
     Route: 065
     Dates: end: 20050125
  8. LIPITOR [Concomitant]
  9. DILAUDID [Concomitant]

REACTIONS (3)
  - AMAUROSIS [None]
  - CEREBRAL THROMBOSIS [None]
  - OPTIC NERVE DISORDER [None]
